FAERS Safety Report 11880090 (Version 1)
Quarter: 2015Q4

REPORT INFORMATION
  Report Type: Spontaneous
  Country: US (occurrence: None)
  Receive Date: 20151230
  Receipt Date: 20151230
  Transmission Date: 20160305
  Serious: Yes (Death)
  Sender: FDA-Public Use
  Company Number: None

PATIENT
  Age: 22 Year
  Sex: Male
  Weight: 79.38 kg

DRUGS (1)
  1. PREDNISONE. [Suspect]
     Active Substance: PREDNISONE
     Indication: EXPOSURE TO TOXIC AGENT
     Dosage: TAKEN BY MOUTH
     Dates: start: 20150906, end: 20150906

REACTIONS (3)
  - Completed suicide [None]
  - Alcohol use [None]
  - Feeling abnormal [None]
